FAERS Safety Report 4340262-2 (Version None)
Quarter: 2004Q2

REPORT INFORMATION
  Report Type: 
  Country: None (occurrence: None)
  Receive Date: 20040414
  Receipt Date: 20040331
  Transmission Date: 20050107
  Serious: Yes (Other)
  Sender: FDA-Public Use
  Company Number: S04-USA-00722-01

PATIENT
  Age: 46 Year
  Sex: Male
  Weight: 75.7507 kg

DRUGS (4)
  1. LEXAPRO [Suspect]
     Indication: ANXIETY
     Dosage: 10 MG QD PO
     Route: 048
     Dates: start: 20031117, end: 20031207
  2. LEXAPRO [Suspect]
     Indication: DEPRESSION
     Dosage: 10 MG QD PO
     Route: 048
     Dates: start: 20031117, end: 20031207
  3. PRILOSEC [Concomitant]
  4. TYLENOL [Concomitant]

REACTIONS (1)
  - BLINDNESS TRANSIENT [None]
